FAERS Safety Report 4643170-2 (Version None)
Quarter: 2005Q2

REPORT INFORMATION
  Report Type: 
  Country: None (occurrence: None)
  Receive Date: 20050422
  Receipt Date: 20050217
  Transmission Date: 20051028
  Serious: Yes (Hospitalization, Other)
  Sender: FDA-Public Use
  Company Number: 2005033460

PATIENT
  Age: 57 Year
  Sex: Female
  Weight: 65.7716 kg

DRUGS (9)
  1. FLAGYL [Suspect]
     Indication: POSTOPERATIVE INFECTION
     Dosage: ORAL
     Route: 048
     Dates: start: 20041226, end: 20050118
  2. ZYVOX [Suspect]
     Indication: ABDOMINAL ABSCESS
     Dosage: (TWICE DAILY) ORAL
     Route: 048
     Dates: start: 20050131, end: 20050201
  3. CIPROFLOXACIN [Concomitant]
  4. ANTIHYPERTENSIVE [Concomitant]
  5. GLIMEPIRIDE [Concomitant]
  6. METFORMIN HCL [Concomitant]
  7. CITALOPRAM HYDROBROMIDE [Concomitant]
  8. BUDESONIDE [Concomitant]
  9. MONTELUKAST SODIUM [Concomitant]

REACTIONS (9)
  - ABDOMINAL ABSCESS [None]
  - INSOMNIA [None]
  - NAUSEA [None]
  - PRURITUS [None]
  - RASH [None]
  - RESTLESS LEGS SYNDROME [None]
  - STREPTOCOCCAL INFECTION [None]
  - URTICARIA [None]
  - WHITE BLOOD CELL COUNT INCREASED [None]
